FAERS Safety Report 7126590-6 (Version None)
Quarter: 2010Q4

REPORT INFORMATION
  Report Type: 
  Country: None (occurrence: None)
  Receive Date: 20101129
  Receipt Date: 20101123
  Transmission Date: 20110411
  Serious: Yes (Death, Hospitalization)
  Sender: FDA-Public Use
  Company Number: IN-ELI_LILLY_AND_COMPANY-IN201011006428

PATIENT
  Age: 71 Year
  Sex: Male

DRUGS (3)
  1. XIGRIS [Suspect]
     Indication: SEPTIC SHOCK
     Dosage: UNK, UNKNOWN
     Route: 065
     Dates: start: 20101115, end: 20101119
  2. XIGRIS [Suspect]
     Dosage: UNK, UNKNOWN
     Route: 065
     Dates: start: 20101119, end: 20101119
  3. ANTIBIOTICS [Concomitant]

REACTIONS (4)
  - HYPOTENSION [None]
  - MULTI-ORGAN FAILURE [None]
  - PULMONARY HAEMORRHAGE [None]
  - SEPTIC SHOCK [None]
